FAERS Safety Report 6245663-3 (Version None)
Quarter: 2009Q2

REPORT INFORMATION
  Report Type: 
  Country: None (occurrence: None)
  Receive Date: 20090625
  Receipt Date: 20090622
  Transmission Date: 20091009
  Serious: Yes (Death, Hospitalization)
  Sender: FDA-Public Use
  Company Number: ZW-GILEAD-2009-0022710

PATIENT
  Age: 27 Year
  Sex: Female
  Weight: 43 kg

DRUGS (3)
  1. TRUVADA [Suspect]
     Indication: HIV INFECTION
     Route: 048
     Dates: start: 20070327, end: 20090411
  2. ALUVIA [Suspect]
     Indication: HIV INFECTION
     Route: 048
     Dates: start: 20070327, end: 20090411
  3. DEPO-PROVERA [Concomitant]

REACTIONS (1)
  - SEPSIS [None]
